FAERS Safety Report 21694686 (Version 1)
Quarter: 2022Q4

REPORT INFORMATION
  Report Type: Spontaneous
  Country: SA (occurrence: None)
  Receive Date: 20221207
  Receipt Date: 20221207
  Transmission Date: 20230113
  Serious: Yes (Disabling)
  Sender: FDA-Public Use
  Company Number: None

PATIENT
  Age: 33 Year
  Sex: Female
  Weight: 72 kg

DRUGS (20)
  1. EMGALITY [Suspect]
     Active Substance: GALCANEZUMAB-GNLM
     Indication: Migraine
     Dosage: OTHER QUANTITY : 1 INJECTION(S);?OTHER FREQUENCY : ONCE MONTHLY;?OTHER ROUTE : UDER SKIN;?
     Route: 050
     Dates: start: 20220810
  2. BUPROPION [Concomitant]
     Active Substance: BUPROPION
  3. CIPRALEX [Concomitant]
     Active Substance: ESCITALOPRAM OXALATE
  4. Propranolo [Concomitant]
  5. TOPAMAX [Concomitant]
     Active Substance: TOPIRAMATE
  6. Telefast [Concomitant]
  7. SINGULAIR [Concomitant]
     Active Substance: MONTELUKAST SODIUM
  8. EMGALITY [Concomitant]
     Active Substance: GALCANEZUMAB-GNLM
  9. FLUCONAZOLE [Concomitant]
     Active Substance: FLUCONAZOLE
  10. Imegran [Concomitant]
  11. VITAMINS [Concomitant]
     Active Substance: VITAMINS
  12. suntrum Mg [Concomitant]
  13. VITAMIN C [Concomitant]
     Active Substance: ASCORBIC ACID
  14. Prebiotic [Concomitant]
  15. Ca [Concomitant]
  16. ZINC [Concomitant]
     Active Substance: ZINC
  17. VITAMIN D NOS [Concomitant]
     Active Substance: VITAMIN D NOS
  18. Omega [Concomitant]
  19. FEVADOL [Concomitant]
  20. Profin Relaxon [Concomitant]

REACTIONS (4)
  - Vulvovaginal candidiasis [None]
  - Weight increased [None]
  - Heavy menstrual bleeding [None]
  - Dysmenorrhoea [None]

NARRATIVE: CASE EVENT DATE: 20221207
